FAERS Safety Report 25032726 (Version 1)
Quarter: 2025Q1

REPORT INFORMATION
  Report Type: Spontaneous
  Country: US (occurrence: None)
  Receive Date: 20250303
  Receipt Date: 20250303
  Transmission Date: 20250409
  Serious: Yes (Life-Threatening, Other)
  Sender: FDA-CTU
  Company Number: None

PATIENT
  Age: 87 Year
  Sex: Female
  Weight: 57 kg

DRUGS (1)
  1. CEFTRIAXONE SODIUM [Suspect]
     Active Substance: CEFTRIAXONE SODIUM
     Indication: Urinary tract infection
     Route: 042

REACTIONS (2)
  - Heart rate decreased [None]
  - Infusion related reaction [None]

NARRATIVE: CASE EVENT DATE: 20250301
